FAERS Safety Report 26091876 (Version 1)
Quarter: 2025Q4

REPORT INFORMATION
  Report Type: Report from Study
  Country: CO (occurrence: CO)
  Receive Date: 20251126
  Receipt Date: 20251126
  Transmission Date: 20260118
  Serious: Yes (Hospitalization, Other)
  Sender: EMD SERONO INC
  Company Number: CO-Merck Healthcare KGaA-2025057600

PATIENT
  Age: 22 Year
  Sex: Female

DRUGS (4)
  1. MAVENCLAD [Suspect]
     Active Substance: CLADRIBINE
     Indication: Multiple sclerosis
     Dosage: YEAR 1 CYCLE 1 THERAPY, 2 TABLETS ON DAYS 1 TO 3, 1 TABLET ON DAYS 4 AND 5. EXPIRY DATE: APR-2026
     Dates: start: 20230822, end: 20230826
  2. MAVENCLAD [Suspect]
     Active Substance: CLADRIBINE
     Dosage: YEAR 1 CYCLE 2 THERAPY 2 TABLETS ON DAYS 1 AND 2, 1 TABLET ON DAYS 3 AND 5
     Dates: start: 20230926, end: 20230930
  3. MAVENCLAD [Suspect]
     Active Substance: CLADRIBINE
     Dosage: YEAR 2 CYCLE 1 THERAPY AT A DOSE OF 2 TABLETS ON DAYS 1 TO 3, 1 TABLET ON DAYS 4 AND 5
     Dates: start: 20240822, end: 20240826
  4. MAVENCLAD [Suspect]
     Active Substance: CLADRIBINE
     Dosage: YEAR 2 CYCLE 2 THERAPY 2 TABLETS ON DAYS 1 AND 2, 1 TABLET ON DAYS 3 AND 5
     Dates: start: 20240919, end: 20240923

REACTIONS (2)
  - Cerebrovascular accident [Unknown]
  - Seizure [Not Recovered/Not Resolved]

NARRATIVE: CASE EVENT DATE: 20251106
